FAERS Safety Report 7985945-8 (Version None)
Quarter: 2011Q4

REPORT INFORMATION
  Report Type: 
  Country: None (occurrence: None)
  Receive Date: 20111216
  Receipt Date: 20111209
  Transmission Date: 20120403
  Serious: Yes (Hospitalization, Other)
  Sender: FDA-Public Use
  Company Number: US-CEPHALON-2011006193

PATIENT
  Sex: Female

DRUGS (3)
  1. PERCOCET [Concomitant]
  2. FENTORA [Suspect]
     Indication: PELVIC PAIN
     Route: 002
     Dates: start: 20100101
  3. FENTORA [Suspect]
     Route: 002

REACTIONS (4)
  - DRUG INEFFECTIVE FOR UNAPPROVED INDICATION [None]
  - PAIN [None]
  - EUPHORIC MOOD [None]
  - DRUG PRESCRIBING ERROR [None]
